FAERS Safety Report 15296323 (Version 3)
Quarter: 2018Q3

REPORT INFORMATION
  Report Type: Spontaneous
  Country: US (occurrence: US)
  Receive Date: 20180820
  Receipt Date: 20180831
  Transmission Date: 20181010
  Serious: Yes (Other)
  Sender: FDA-Public Use
  Company Number: US-PFIZER INC-2018331165

PATIENT
  Age: 69 Year
  Sex: Female
  Weight: 67.59 kg

DRUGS (1)
  1. GABAPENTIN. [Suspect]
     Active Substance: GABAPENTIN
     Indication: NEUROPATHY PERIPHERAL
     Dosage: UNK

REACTIONS (11)
  - Mood altered [Unknown]
  - Neuropathy peripheral [Unknown]
  - Condition aggravated [Unknown]
  - Drug ineffective for unapproved indication [Unknown]
  - Malaise [Unknown]
  - Headache [Unknown]
  - Nervousness [Unknown]
  - Agitation [Unknown]
  - Anger [Unknown]
  - Hyperhidrosis [Unknown]
  - Dizziness [Unknown]
